FAERS Safety Report 9825864 (Version 1)
Quarter: 2014Q1

REPORT INFORMATION
  Report Type: Spontaneous
  Country: US (occurrence: None)
  Receive Date: 20140116
  Receipt Date: 20140116
  Transmission Date: 20141002
  Serious: Yes (Other)
  Sender: FDA-Public Use
  Company Number: None

PATIENT
  Age: 10 Year
  Sex: Male

DRUGS (2)
  1. CLONIDINE [Suspect]
     Indication: IMPULSE-CONTROL DISORDER
     Route: 048
     Dates: start: 20131120, end: 20131223
  2. CLONIDINE [Suspect]
     Route: 048
     Dates: start: 20131120, end: 20131223

REACTIONS (6)
  - Aggression [None]
  - Impulse-control disorder [None]
  - Aggression [None]
  - Condition aggravated [None]
  - Product substitution issue [None]
  - Therapeutic response unexpected with drug substitution [None]
